FAERS Safety Report 6258098-4 (Version None)
Quarter: 2009Q3

REPORT INFORMATION
  Report Type: 
  Country: None (occurrence: None)
  Receive Date: 20090707
  Receipt Date: 20090626
  Transmission Date: 20100115
  Serious: Yes (Other)
  Sender: FDA-Public Use
  Company Number: PHHY2009BR26140

PATIENT
  Sex: Male
  Weight: 120 kg

DRUGS (7)
  1. TEGRETOL [Suspect]
     Indication: CONVULSION
     Dosage: 200 MG, BID
     Dates: end: 20000101
  2. TEGRETOL [Suspect]
     Indication: CONVULSION
     Dosage: 400 MG, BID
     Route: 048
     Dates: start: 20000101
  3. HIDANTAL [Concomitant]
  4. PHENOBARBITAL [Concomitant]
     Indication: CONVULSION
     Dosage: 100 MG, BID
     Route: 048
     Dates: start: 20000101
  5. SERETIDE [Concomitant]
     Indication: BRONCHITIS
     Dosage: TWICE DAILY
     Dates: start: 20000101
  6. NASONEX [Concomitant]
     Indication: RHINITIS
     Dosage: TWICE DAILY
     Dates: start: 20000101
  7. AEROLIN [Concomitant]
     Indication: BRONCHITIS
     Dosage: PRN
     Dates: start: 20000101

REACTIONS (9)
  - CONVULSION [None]
  - DRUG DOSE OMISSION [None]
  - EYE PAIN [None]
  - FALL [None]
  - GROWTH RETARDATION [None]
  - OCULAR HYPERAEMIA [None]
  - PAIN [None]
  - PARAESTHESIA [None]
  - WEIGHT INCREASED [None]
